FAERS Safety Report 15741911 (Version 1)
Quarter: 2018Q4

REPORT INFORMATION
  Report Type: Spontaneous
  Country: US (occurrence: US)
  Receive Date: 20181219
  Receipt Date: 20181219
  Transmission Date: 20190205
  Serious: No
  Sender: FDA-Public Use
  Company Number: US-LUNDBECK-DKLU2058304

PATIENT
  Age: 3 Month
  Sex: Male

DRUGS (3)
  1. CLOBAZAM (ORAL SUSPENSION) [Suspect]
     Active Substance: CLOBAZAM
     Indication: EPILEPSY
     Route: 065
  2. TOPIRAMATE. [Suspect]
     Active Substance: TOPIRAMATE
     Indication: EPILEPSY
     Route: 065
  3. FELBAMATE. [Suspect]
     Active Substance: FELBAMATE
     Indication: EPILEPSY
     Route: 065

REACTIONS (1)
  - Somnolence [Unknown]
